FAERS Safety Report 24451715 (Version 1)
Quarter: 2024Q4

REPORT INFORMATION
  Report Type: Spontaneous
  Country: US (occurrence: None)
  Receive Date: 20241017
  Receipt Date: 20241017
  Transmission Date: 20250115
  Serious: Yes (unspecified)
  Sender: Public
  Company Number: None

PATIENT
  Age: 64 Year
  Sex: Female
  Weight: 104.4 kg

DRUGS (1)
  1. NITROFURANTOIN MONOHYDRATE MACROCRYSTALS [Suspect]
     Active Substance: NITROFURANTOIN\NITROFURANTOIN MONOHYDRATE
     Indication: Urinary tract infection

REACTIONS (5)
  - Rash pruritic [None]
  - Loss of consciousness [None]
  - Dizziness [None]
  - Nausea [None]
  - Feeling abnormal [None]

NARRATIVE: CASE EVENT DATE: 20241015
